FAERS Safety Report 5487512-7 (Version None)
Quarter: 2007Q4

REPORT INFORMATION
  Report Type: 
  Country: None (occurrence: None)
  Receive Date: 20071016
  Receipt Date: 20071004
  Transmission Date: 20080405
  Serious: Yes (Hospitalization, Other)
  Sender: FDA-Public Use
  Company Number: US-PFIZER INC-2007084247

PATIENT
  Age: 54 Year
  Sex: Male

DRUGS (9)
  1. CHANTIX [Suspect]
     Indication: SMOKING CESSATION THERAPY
     Dates: start: 20070101, end: 20070101
  2. LYRICA [Concomitant]
  3. ZOCOR [Concomitant]
  4. DILANTIN [Concomitant]
  5. TEGRETOL [Concomitant]
  6. METFORMIN HCL [Concomitant]
  7. LOPID [Concomitant]
  8. ZETIA [Concomitant]
  9. GLUCOTROL [Concomitant]

REACTIONS (2)
  - HALLUCINATION [None]
  - INJURY [None]
